FAERS Safety Report 9308909 (Version 1)
Quarter: 2013Q2

REPORT INFORMATION
  Report Type: Spontaneous
  Country: ES (occurrence: ES)
  Receive Date: 20130524
  Receipt Date: 20130524
  Transmission Date: 20140414
  Serious: Yes (Other)
  Sender: FDA-Public Use
  Company Number: ES-PFIZER INC-2013156719

PATIENT
  Age: 89 Year
  Sex: Female

DRUGS (2)
  1. BESITRAN [Suspect]
     Indication: DEPRESSION
     Dosage: 50 MG ONCE DAILY, AS NEEDED
     Route: 048
     Dates: start: 2013
  2. ALDACTONE [Suspect]
     Dosage: 25 MG, UNK
     Route: 048
     Dates: start: 2013

REACTIONS (1)
  - Hyponatraemia [Recovering/Resolving]
